FAERS Safety Report 5040228-3 (Version None)
Quarter: 2006Q2

REPORT INFORMATION
  Report Type: 
  Country: None (occurrence: None)
  Receive Date: 20060630
  Receipt Date: 20060621
  Transmission Date: 20061013
  Serious: Yes (Hospitalization)
  Sender: FDA-Public Use
  Company Number: PHBS2006ES09233

PATIENT
  Age: 74 Year
  Sex: Female

DRUGS (3)
  1. TOFRANIL [Suspect]
     Indication: DEPRESSION
     Dosage: 150 MG/D
     Route: 048
     Dates: start: 20050801, end: 20060425
  2. ATENOLOL [Suspect]
     Indication: HYPERTENSION
     Dosage: 100 MG, BID
     Route: 048
     Dates: start: 19950101
  3. TRYPTIZOL [Suspect]
     Indication: DEPRESSION
     Dosage: 25 MG/D
     Route: 048
     Dates: start: 20050801, end: 20060425

REACTIONS (3)
  - DRUG INTERACTION [None]
  - HAEMATOCRIT DECREASED [None]
  - ORTHOSTATIC HYPOTENSION [None]
